FAERS Safety Report 19609532 (Version 1)
Quarter: 2021Q3

REPORT INFORMATION
  Report Type: Report from Study
  Country: DE (occurrence: DE)
  Receive Date: 20210726
  Receipt Date: 20210726
  Transmission Date: 20211014
  Serious: Yes (Hospitalization)
  Sender: FDA-Public Use
  Company Number: DE-ACCORD-232989

PATIENT
  Sex: Male

DRUGS (10)
  1. ATORVASTATIN [Concomitant]
     Active Substance: ATORVASTATIN
  2. TORASEMIDE [Concomitant]
     Active Substance: TORSEMIDE
  3. ELIQUIS [Concomitant]
     Active Substance: APIXABAN
  4. NIFEDIPINE. [Concomitant]
     Active Substance: NIFEDIPINE
  5. CLONIDINE. [Concomitant]
     Active Substance: CLONIDINE
  6. PREDNISOLONE. [Concomitant]
     Active Substance: PREDNISOLONE
  7. ATENOLOL/ATENOLOL HYDROCHLORIDE [Concomitant]
     Active Substance: ATENOLOL HYDROCHLORIDE
  8. PANTOPRAZOLE [Concomitant]
     Active Substance: PANTOPRAZOLE
  9. METHOTREXATE. [Suspect]
     Active Substance: METHOTREXATE
     Indication: RHEUMATOID ARTHRITIS
     Route: 065
  10. TOCILIZUMAB. [Suspect]
     Active Substance: TOCILIZUMAB
     Indication: RHEUMATOID ARTHRITIS
     Route: 065
     Dates: end: 201705

REACTIONS (3)
  - Hydrocele male infected [Recovered/Resolved]
  - Epididymitis [Recovered/Resolved]
  - Sepsis [Recovered/Resolved]

NARRATIVE: CASE EVENT DATE: 201705
